FAERS Safety Report 8346718-X (Version None)
Quarter: 2012Q2

REPORT INFORMATION
  Report Type: 
  Country: None (occurrence: None)
  Receive Date: 20120509
  Receipt Date: 20120502
  Transmission Date: 20120825
  Serious: Yes (Death)
  Sender: FDA-Public Use
  Company Number: IT-CUBIST-2012S1000410

PATIENT
  Age: 74 Year
  Sex: Male

DRUGS (5)
  1. CLARITHROMYCIN [Concomitant]
     Dosage: DOSE UNIT:U
  2. RIFAMPICIN [Concomitant]
     Dosage: DOSE UNIT:U
  3. RIFAMPICIN [Concomitant]
     Indication: STAPHYLOCOCCAL INFECTION
     Dosage: DOSE UNIT:U
  4. CLARITHROMYCIN [Concomitant]
     Indication: STAPHYLOCOCCAL INFECTION
     Dosage: DOSE UNIT:U
  5. CUBICIN [Suspect]
     Indication: ENDOCARDITIS

REACTIONS (1)
  - AORTIC ANEURYSM RUPTURE [None]
